FAERS Safety Report 7221389-4 (Version None)
Quarter: 2011Q1

REPORT INFORMATION
  Report Type: 
  Country: None (occurrence: None)
  Receive Date: 20110112
  Receipt Date: 20110103
  Transmission Date: 20110831
  Serious: Yes (Hospitalization)
  Sender: FDA-Public Use
  Company Number: NL-MEDIMMUNE-MEDI-0012149

PATIENT
  Sex: Male
  Weight: 6.7 kg

DRUGS (7)
  1. SYNAGIS [Suspect]
     Route: 030
     Dates: start: 20110103, end: 20110103
  2. HYDROCHLOROTHIAZIDE [Concomitant]
  3. BUDESONIDE [Concomitant]
     Dates: start: 20100801
  4. IPRAXA [Concomitant]
     Dates: start: 20100801
  5. ALBUTEROL [Concomitant]
     Dates: start: 20100801
  6. SYNAGIS [Suspect]
     Route: 030
     Dates: start: 20101011, end: 20101206
  7. TRIAMTERENE [Concomitant]

REACTIONS (4)
  - MENTAL IMPAIRMENT [None]
  - RESPIRATORY SYNCYTIAL VIRUS TEST POSITIVE [None]
  - HYPOPHAGIA [None]
  - GASTROENTERITIS VIRAL [None]
